FAERS Safety Report 7934070-0 (Version None)
Quarter: 2011Q4

REPORT INFORMATION
  Report Type: 
  Country: None (occurrence: None)
  Receive Date: 20111122
  Receipt Date: 20110815
  Transmission Date: 20120403
  Serious: No
  Sender: FDA-Public Use
  Company Number: US-BAYER-2011-073364

PATIENT
  Age: 69 Year
  Sex: Male

DRUGS (1)
  1. STAXYN [Suspect]
     Indication: ERECTILE DYSFUNCTION
     Dosage: 10 MG, BID
     Route: 048
     Dates: start: 20110811, end: 20110814

REACTIONS (1)
  - DRUG INEFFECTIVE [None]
